FAERS Safety Report 8796201 (Version 2)
Quarter: 2012Q4

REPORT INFORMATION
  Report Type: 
  Country: US (occurrence: US)
  Receive Date: 20120920
  Receipt Date: 20121004
  Transmission Date: 20130627
  Serious: Yes (Hospitalization)
  Sender: FDA-Public Use
  Company Number: US-PFIZER INC-2012231873

PATIENT
  Age: 50 Year
  Sex: Female
  Weight: 79.37 kg

DRUGS (3)
  1. ZARONTIN [Suspect]
     Indication: EPILEPSY
     Dosage: 500 mg, 2x/day
     Dates: start: 201105
  2. ZARONTIN [Suspect]
     Dosage: UNK
  3. KEPPRA [Suspect]
     Indication: EPILEPSY
     Dosage: 500 mg, 5x/day

REACTIONS (2)
  - Incorrect dose administered [Unknown]
  - Convulsion [Unknown]
